FAERS Safety Report 6847944-9 (Version None)
Quarter: 2010Q3

REPORT INFORMATION
  Report Type: 
  Country: None (occurrence: None)
  Receive Date: 20100716
  Receipt Date: 20100708
  Transmission Date: 20110219
  Serious: Yes (Hospitalization)
  Sender: FDA-Public Use
  Company Number: GB-AMGEN-KDC422958

PATIENT
  Sex: Male

DRUGS (15)
  1. VECTIBIX [Suspect]
     Indication: GASTROOESOPHAGEAL CANCER
     Dates: start: 20100422
  2. EPIRUBICIN [Suspect]
     Dates: start: 20100422
  3. OXALIPLATIN [Suspect]
     Dates: start: 20100422
  4. CAPECITABINE [Suspect]
     Dates: start: 20100422
  5. INFUMORPH [Concomitant]
     Dates: start: 20100422
  6. ORAMORPH SR [Concomitant]
     Dates: start: 20100422
  7. ASPIRIN [Concomitant]
     Dates: start: 20100422
  8. MIRTAZAPINE [Concomitant]
     Dates: start: 20100422
  9. LANSOPRAZOLE [Concomitant]
     Dates: start: 20100422
  10. DEXAMETHASONE [Concomitant]
     Dates: start: 20100422
  11. ENOXAPARIN SODIUM [Concomitant]
     Dates: start: 20100422
  12. ZOPICLONE [Concomitant]
     Dates: start: 20100422
  13. TINZAPARIN SODIUM [Concomitant]
     Dates: start: 20100511
  14. QUININE [Concomitant]
     Dates: start: 20100605
  15. LORAZEPAM [Concomitant]
     Dates: start: 20100422

REACTIONS (2)
  - INFECTION [None]
  - PARONYCHIA [None]
